FAERS Safety Report 16069347 (Version 2)
Quarter: 2020Q1

REPORT INFORMATION
  Report Type: Report from Study
  Country: GR (occurrence: GR)
  Receive Date: 20190313
  Receipt Date: 20200123
  Transmission Date: 20200409
  Serious: Yes (Death, Life-Threatening, Other)
  Sender: FDA-Public Use
  Company Number: GR-AMGEN-GRCNI2019037501

PATIENT
  Age: 11 Month
  Sex: Male

DRUGS (9)
  1. BLINATUMOMAB [Suspect]
     Active Substance: BLINATUMOMAB
     Indication: ACUTE LYMPHOCYTIC LEUKAEMIA REFRACTORY
     Dosage: UNK
     Route: 065
     Dates: start: 20170909, end: 20170909
  2. CYCLOPHOSPHAMIDE. [Concomitant]
     Active Substance: CYCLOPHOSPHAMIDE
     Dosage: UNK
  3. ETOPOSIDE. [Concomitant]
     Active Substance: ETOPOSIDE
     Dosage: UNK
  4. PURINETHOL [Concomitant]
     Active Substance: MERCAPTOPURINE
     Dosage: UNK
  5. METHOTREXATE. [Concomitant]
     Active Substance: METHOTREXATE
     Dosage: UNK
  6. CLOFARABINE. [Concomitant]
     Active Substance: CLOFARABINE
     Dosage: UNK
  7. BLINATUMOMAB [Suspect]
     Active Substance: BLINATUMOMAB
     Dosage: 45 MICROGRAM/KILOGRAM (TRIPLE DOSE), QD
     Route: 065
     Dates: start: 20171219, end: 20171219
  8. VINCRISTINE [Concomitant]
     Active Substance: VINCRISTINE
     Dosage: UNK
  9. VORICONAZOLE. [Concomitant]
     Active Substance: VORICONAZOLE
     Dosage: 15 MILLIGRAM/KILOGRAM PER BODY WEIGHT (BW) FINAL DOSE

REACTIONS (9)
  - Rash maculo-papular [Recovering/Resolving]
  - Acute lymphocytic leukaemia refractory [Fatal]
  - Systemic mycosis [Recovering/Resolving]
  - Dyspnoea [Recovering/Resolving]
  - Bacteraemia [Unknown]
  - Fungal infection [Recovering/Resolving]
  - Therapy non-responder [Unknown]
  - Oliguria [Recovering/Resolving]
  - Febrile neutropenia [Recovering/Resolving]

NARRATIVE: CASE EVENT DATE: 20170929
